FAERS Safety Report 19493672 (Version 1)
Quarter: 2021Q3

REPORT INFORMATION
  Report Type: Report from Study
  Country: CA (occurrence: CA)
  Receive Date: 20210705
  Receipt Date: 20210705
  Transmission Date: 20211014
  Serious: Yes (Hospitalization, Other)
  Sender: FDA-Public Use
  Company Number: CA-SHIRE-CA202010751

PATIENT
  Age: 85 Year
  Sex: Male

DRUGS (3)
  1. GAMMAGARD [Concomitant]
     Active Substance: HUMAN IMMUNOGLOBULIN G
     Indication: PRODUCT USED FOR UNKNOWN INDICATION
     Dosage: UNK
     Route: 065
     Dates: start: 20010101, end: 20170101
  2. CUVITRU [Suspect]
     Active Substance: HUMAN IMMUNOGLOBULIN G
     Indication: SECONDARY IMMUNODEFICIENCY
     Dosage: 6 GRAM, 1X/WEEK
     Route: 058
     Dates: start: 20180723
  3. HIZENTRA [Concomitant]
     Active Substance: HUMAN IMMUNOGLOBULIN G
     Indication: PRODUCT USED FOR UNKNOWN INDICATION
     Dosage: UNK
     Route: 065
     Dates: start: 20170102

REACTIONS (10)
  - Bladder cancer [Not Recovered/Not Resolved]
  - Dyspepsia [Unknown]
  - Sleep disorder [Not Recovered/Not Resolved]
  - Dementia [Unknown]
  - Anxiety [Not Recovered/Not Resolved]
  - Product administration interrupted [Unknown]
  - Urinary bladder haemorrhage [Unknown]
  - Blood pressure abnormal [Not Recovered/Not Resolved]
  - Chronic lymphocytic leukaemia [Unknown]
  - Cystitis [Not Recovered/Not Resolved]

NARRATIVE: CASE EVENT DATE: 201909
